FAERS Safety Report 6626164-7 (Version None)
Quarter: 2010Q1

REPORT INFORMATION
  Report Type: 
  Country: None (occurrence: None)
  Receive Date: 20100310
  Receipt Date: 20100226
  Transmission Date: 20100710
  Serious: Yes (Other)
  Sender: FDA-Public Use
  Company Number: PHHY2010IL12185

PATIENT
  Age: 26 Year
  Sex: Female

DRUGS (1)
  1. RITALIN-SR [Suspect]
     Indication: ATTENTION DEFICIT/HYPERACTIVITY DISORDER
     Dosage: 20 MG DAILY

REACTIONS (2)
  - DYSTHYMIC DISORDER [None]
  - HEADACHE [None]
